FAERS Safety Report 16933091 (Version 1)
Quarter: 2019Q4

REPORT INFORMATION
  Report Type: Report from Study
  Country: JP (occurrence: JP)
  Receive Date: 20191018
  Receipt Date: 20191018
  Transmission Date: 20200122
  Serious: Yes (Other)
  Sender: FDA-Public Use
  Company Number: JP-ROCHE-2398912

PATIENT

DRUGS (1)
  1. RITUXIMAB. [Suspect]
     Active Substance: RITUXIMAB
     Indication: LYMPHOMA
     Route: 041

REACTIONS (5)
  - Bone marrow failure [Unknown]
  - Aspartate aminotransferase increased [Unknown]
  - Infection [Unknown]
  - Infusion related reaction [Unknown]
  - Alanine aminotransferase increased [Unknown]
